FAERS Safety Report 25415238 (Version 1)
Quarter: 2025Q2

REPORT INFORMATION
  Report Type: Report from Study
  Country: GB (occurrence: GB)
  Receive Date: 20250609
  Receipt Date: 20250609
  Transmission Date: 20250717
  Serious: Yes (Other)
  Sender: CELLTRION
  Company Number: GB-CELLTRION INC.-2025GB017462

PATIENT

DRUGS (2)
  1. ADALIMUMAB-AATY [Suspect]
     Active Substance: ADALIMUMAB-AATY
     Indication: Psoriatic arthropathy
     Dosage: YUFLYMA 40MG FOR INJECTION PENS - INJECT ONE PRE-FILLED PEN EVERY TWO WEEKS
     Route: 058
     Dates: start: 202503
  2. COSENTYX [Concomitant]
     Active Substance: SECUKINUMAB

REACTIONS (3)
  - Throat tightness [Unknown]
  - Chest discomfort [Unknown]
  - Dizziness [Unknown]
